FAERS Safety Report 23270475 (Version 4)
Quarter: 2024Q1

REPORT INFORMATION
  Report Type: Spontaneous
  Country: AT (occurrence: AT)
  Receive Date: 20231207
  Receipt Date: 20240304
  Transmission Date: 20240410
  Serious: Yes (Hospitalization, Other)
  Sender: FDA-Public Use
  Company Number: AT-ROCHE-2720022

PATIENT
  Age: 89 Year
  Sex: Female
  Weight: 89 kg

DRUGS (99)
  1. ANASTROZOLE [Suspect]
     Active Substance: ANASTROZOLE
     Indication: Breast cancer metastatic
     Dosage: MOST RECENT DOSE PRIOR TO AE 14/MAY/2018/ 1 MG, 1X/DAY,
     Route: 042
     Dates: start: 20170324
  2. ARIMIDEX [Suspect]
     Active Substance: ANASTROZOLE
     Indication: HER2 positive breast cancer
     Dosage: 1.000MG QD
     Route: 048
     Dates: start: 20170324, end: 20180514
  3. DOCETAXEL [Suspect]
     Active Substance: DOCETAXEL\DOCETAXEL ANHYDROUS
     Dosage: 106.22 MG
     Route: 065
     Dates: start: 20181017, end: 20181017
  4. DOCETAXEL [Suspect]
     Active Substance: DOCETAXEL\DOCETAXEL ANHYDROUS
     Dosage: 132.78 MG, TIW
     Route: 065
     Dates: start: 20180926, end: 20180926
  5. DOCETAXEL [Suspect]
     Active Substance: DOCETAXEL\DOCETAXEL ANHYDROUS
     Dosage: 134.32 MG, TIW
     Route: 042
     Dates: start: 20180723, end: 20180904
  6. DOCETAXEL [Suspect]
     Active Substance: DOCETAXEL\DOCETAXEL ANHYDROUS
     Indication: Breast cancer metastatic
     Dosage: 137 MG, TIW (DATE OF MOST RECENT DOSE: 23 JUL 2018 137 MG, EVERY 3 WEEKS,)
     Route: 065
     Dates: start: 20180608, end: 20180608
  7. DOCETAXEL [Suspect]
     Active Substance: DOCETAXEL\DOCETAXEL ANHYDROUS
     Dosage: 672.74 MG
     Route: 065
  8. DOCETAXEL [Suspect]
     Active Substance: DOCETAXEL\DOCETAXEL ANHYDROUS
     Dosage: UNK
     Route: 065
  9. DENOSUMAB [Suspect]
     Active Substance: DENOSUMAB
     Indication: Breast cancer metastatic
     Dosage: 120 MG, QMO, MOST RECENT DOSE PRIOR TO THE EVENT: 02 MAR 2021
     Route: 042
     Dates: start: 20170505, end: 20180329
  10. FULVESTRANT [Suspect]
     Active Substance: FULVESTRANT
     Indication: Breast cancer metastatic
     Dosage: 500 MG, BIW (MOST RECENT DOSE PRIOR TO THE EVENT: 26 DEC 2018/ 500 MG EVERY 2 WEEKS, FREQ:2 WK;)
     Route: 042
     Dates: start: 20181128, end: 20181226
  11. FULVESTRANT [Suspect]
     Active Substance: FULVESTRANT
     Dosage: 500 MG, BIW (ONGOING)
     Route: 042
     Dates: start: 20181226
  12. FASLODEX [Suspect]
     Active Substance: FULVESTRANT
     Indication: HER2 positive breast cancer
     Dosage: 500 MG, BIW
     Route: 030
     Dates: start: 20181128, end: 20181226
  13. FASLODEX [Suspect]
     Active Substance: FULVESTRANT
     Dosage: ONGOING
     Route: 030
     Dates: start: 20181226
  14. HERCEPTIN [Suspect]
     Active Substance: TRASTUZUMAB
     Indication: HER2 positive breast cancer
     Dosage: 712.000MG TIW
     Route: 042
     Dates: start: 20170324, end: 20170324
  15. HERCEPTIN [Suspect]
     Active Substance: TRASTUZUMAB
     Dosage: TIW
     Route: 042
     Dates: start: 20181017, end: 20181017
  16. HERCEPTIN [Suspect]
     Active Substance: TRASTUZUMAB
     Dosage: 438.000MG TIW
     Route: 042
     Dates: start: 20180926, end: 20180926
  17. HERCEPTIN [Suspect]
     Active Substance: TRASTUZUMAB
     Dosage: 450.000MG TIW
     Route: 042
     Dates: start: 20180723, end: 20180904
  18. HERCEPTIN [Suspect]
     Active Substance: TRASTUZUMAB
     Dosage: 462.000MG TIW
     Route: 042
     Dates: start: 20180608, end: 20180608
  19. HERCEPTIN [Suspect]
     Active Substance: TRASTUZUMAB
     Dosage: 474.000MG TIW
     Route: 042
     Dates: start: 20171213, end: 20180514
  20. HERCEPTIN [Suspect]
     Active Substance: TRASTUZUMAB
     Dosage: 480.000MG TIW
     Route: 042
     Dates: start: 20170828, end: 20171030
  21. HERCEPTIN [Suspect]
     Active Substance: TRASTUZUMAB
     Dosage: 534.000MG TIW
     Route: 042
     Dates: start: 20170414, end: 20170619
  22. HERCEPTIN [Suspect]
     Active Substance: TRASTUZUMAB
     Dosage: 534.000MG TIW
     Route: 042
     Dates: start: 20170714, end: 20170804
  23. HERCEPTIN [Suspect]
     Active Substance: TRASTUZUMAB
     Dosage: 408 MG, EVERY 3 WEEKS (ON 24/APR/2020, MOST RECENT DOSE
     Route: 042
     Dates: end: 20210424
  24. HERCEPTIN [Suspect]
     Active Substance: TRASTUZUMAB
     Dosage: TIW
     Route: 042
     Dates: start: 20181128, end: 20181128
  25. HERCEPTIN [Suspect]
     Active Substance: TRASTUZUMAB
     Dosage: TIW
     Route: 042
     Dates: start: 20181219
  26. HERCEPTIN [Suspect]
     Active Substance: TRASTUZUMAB
     Dosage: TIW
     Route: 042
     Dates: start: 20200515
  27. ONTRUZANT [Suspect]
     Active Substance: TRASTUZUMAB-DTTB
     Dosage: 408.000MG TIW
     Route: 042
     Dates: start: 20181219, end: 20200424
  28. ONTRUZANT [Suspect]
     Active Substance: TRASTUZUMAB-DTTB
     Indication: HER2 positive breast cancer
     Dosage: 438.000MG TIW
     Route: 042
     Dates: start: 20181017, end: 20181017
  29. ONTRUZANT [Suspect]
     Active Substance: TRASTUZUMAB-DTTB
     Dosage: 408.000MG TIW
     Route: 042
     Dates: end: 20210424
  30. ONTRUZANT [Suspect]
     Active Substance: TRASTUZUMAB-DTTB
     Dosage: 420.000MG TIW
     Route: 042
     Dates: start: 20181128, end: 20181128
  31. ONTRUZANT [Suspect]
     Active Substance: TRASTUZUMAB-DTTB
     Dosage: 450.000MG TIW
     Route: 042
     Dates: start: 20200515, end: 20210402
  32. PERJETA [Suspect]
     Active Substance: PERTUZUMAB
     Dosage: UNK
     Route: 065
  33. PERJETA [Suspect]
     Active Substance: PERTUZUMAB
     Dosage: ONGOING
     Route: 042
     Dates: start: 20180723
  34. PERJETA [Suspect]
     Active Substance: PERTUZUMAB
     Dosage: 420.000MG TIW
     Route: 042
     Dates: start: 20171213, end: 20180608
  35. PERJETA [Suspect]
     Active Substance: PERTUZUMAB
     Indication: HER2 positive breast cancer
     Dosage: 420.000MG
     Route: 042
     Dates: start: 20170714, end: 20171030
  36. PERJETA [Suspect]
     Active Substance: PERTUZUMAB
     Dosage: 420.000MG
     Route: 042
     Dates: start: 20170414, end: 20170619
  37. PERJETA [Suspect]
     Active Substance: PERTUZUMAB
     Dosage: 840.000MG TIW
     Route: 042
     Dates: start: 20170324, end: 20170324
  38. PERJETA [Suspect]
     Active Substance: PERTUZUMAB
     Dosage: 840.000MG TIW
     Route: 042
     Dates: start: 20170714
  39. PERTUZUMAB [Suspect]
     Active Substance: PERTUZUMAB
     Dosage: 420 MG, WEEKLY
     Route: 065
     Dates: start: 20180723
  40. PERTUZUMAB [Suspect]
     Active Substance: PERTUZUMAB
     Dosage: 420 MG, EVERY 3 WEEK
     Route: 065
     Dates: start: 20180723
  41. PERTUZUMAB [Suspect]
     Active Substance: PERTUZUMAB
     Dosage: 420 MG, WEEKLY
     Route: 042
     Dates: start: 20170414, end: 20170619
  42. PERTUZUMAB [Suspect]
     Active Substance: PERTUZUMAB
     Dosage: 420 MG, WEEKLY
     Route: 065
     Dates: start: 20170714, end: 20171030
  43. PERTUZUMAB [Suspect]
     Active Substance: PERTUZUMAB
     Dosage: 420 MG, WEEKLY
     Route: 065
     Dates: start: 20171213, end: 20180608
  44. PERTUZUMAB [Suspect]
     Active Substance: PERTUZUMAB
     Dosage: 840 MG, TIW (MOST RECENT DOSE PRIOR TO THE EVENT: 14/JUL/2017, 13/DEC/2017, 23/JUL/2018)
     Route: 065
     Dates: start: 20170714, end: 20171030
  45. PERTUZUMAB [Suspect]
     Active Substance: PERTUZUMAB
     Indication: Breast cancer metastatic
     Dosage: 840 MG, EVERY 3 WEEKS, MOST RECENT DOSE PRIOR TO THE EVENT: 14/JUL/2017, 13/DEC/2017, 23/JUL/2018
     Route: 065
     Dates: start: 20170324, end: 20170324
  46. PHESGO [Suspect]
     Active Substance: HYALURONIDASE-ZZXF\PERTUZUMAB\TRASTUZUMAB
     Dosage: 10 DF, TIW
     Route: 058
     Dates: start: 20220218, end: 20220701
  47. PHESGO [Suspect]
     Active Substance: HYALURONIDASE-ZZXF\PERTUZUMAB\TRASTUZUMAB
     Dosage: 10 DF, TIW
     Route: 058
     Dates: start: 20210604, end: 20220128
  48. PHESGO [Suspect]
     Active Substance: HYALURONIDASE-ZZXF\PERTUZUMAB\TRASTUZUMAB
     Indication: HER2 positive breast cancer
     Dosage: 15 DF
     Route: 058
     Dates: start: 20210514, end: 20210514
  49. TAXOTERE [Suspect]
     Active Substance: DOCETAXEL
     Dosage: 106.220MG TIW
     Route: 042
     Dates: start: 20181017, end: 20181017
  50. TAXOTERE [Suspect]
     Active Substance: DOCETAXEL
     Dosage: 132.780MG TIW
     Route: 042
     Dates: start: 20180926, end: 20180926
  51. TAXOTERE [Suspect]
     Active Substance: DOCETAXEL
     Dosage: 134.320MG TIW
     Route: 042
     Dates: start: 20180723, end: 20180904
  52. TAXOTERE [Suspect]
     Active Substance: DOCETAXEL
     Indication: HER2 positive breast cancer
     Dosage: 137.000MG TIW
     Route: 042
     Dates: start: 20180608, end: 20180608
  53. TRASTUZUMAB [Suspect]
     Active Substance: TRASTUZUMAB
     Dosage: 438 MG, TIW
     Route: 065
     Dates: start: 20181017, end: 20181017
  54. TRASTUZUMAB [Suspect]
     Active Substance: TRASTUZUMAB
     Dosage: 438 MG, EVERY 3 WEEKS
     Route: 042
     Dates: start: 20180926, end: 20180926
  55. TRASTUZUMAB [Suspect]
     Active Substance: TRASTUZUMAB
     Dosage: UNK, TIW
     Route: 042
     Dates: start: 20181017, end: 20181017
  56. TRASTUZUMAB [Suspect]
     Active Substance: TRASTUZUMAB
     Dosage: 408 MG, TIW (ON 24/APR/2020, MOST RECENT DOSE/ 408 MG, EVERY 3 WEEKS)
     Route: 042
     Dates: start: 20181219
  57. TRASTUZUMAB [Suspect]
     Active Substance: TRASTUZUMAB
     Dosage: ON 24 APR 2020, MOST RECENT DOSE
     Route: 065
     Dates: start: 20181219, end: 20200424
  58. TRASTUZUMAB [Suspect]
     Active Substance: TRASTUZUMAB
     Dosage: 420 MG, TIW
     Route: 065
     Dates: start: 20181128, end: 20181128
  59. TRASTUZUMAB [Suspect]
     Active Substance: TRASTUZUMAB
     Dosage: 450 MG, TIW
     Route: 058
     Dates: start: 20180723, end: 20180904
  60. TRASTUZUMAB [Suspect]
     Active Substance: TRASTUZUMAB
     Dosage: ONGOING
     Route: 065
     Dates: start: 20200515
  61. TRASTUZUMAB [Suspect]
     Active Substance: TRASTUZUMAB
     Dosage: 450 MG, EVERY 3 WEEK
     Route: 042
     Dates: start: 20200515
  62. TRASTUZUMAB [Suspect]
     Active Substance: TRASTUZUMAB
     Dosage: 462 MG, TIW
     Route: 030
     Dates: start: 20180608, end: 20180608
  63. TRASTUZUMAB [Suspect]
     Active Substance: TRASTUZUMAB
     Dosage: 474 MG, TIW
     Route: 065
     Dates: start: 20171213, end: 20180514
  64. TRASTUZUMAB [Suspect]
     Active Substance: TRASTUZUMAB
     Dosage: 480 MG, TIW
     Route: 030
     Dates: start: 20170828, end: 20171030
  65. TRASTUZUMAB [Suspect]
     Active Substance: TRASTUZUMAB
     Dosage: 534 MG, TIW
     Route: 065
     Dates: start: 20170414, end: 20170619
  66. TRASTUZUMAB [Suspect]
     Active Substance: TRASTUZUMAB
     Dosage: 534 MG, TIW
     Route: 065
     Dates: start: 20170714, end: 20170804
  67. TRASTUZUMAB [Suspect]
     Active Substance: TRASTUZUMAB
     Indication: Breast cancer metastatic
     Dosage: MOST RECENT DOSE PRIOR TO THE EVENT: 14/JUL/2017, 08/JUN/2018, 23/JUL/2018, 08/JUN/2018
     Route: 065
     Dates: start: 20170324, end: 20170324
  68. TRASTUZUMAB [Suspect]
     Active Substance: TRASTUZUMAB
     Dosage: 408 MG, EVERY 3 WEEKS (ON 24/APR/2020, MOST RECENT DOSE
     Route: 065
     Dates: end: 20210424
  69. TRASTUZUMAB [Suspect]
     Active Substance: TRASTUZUMAB
     Dosage: UNK
     Route: 065
     Dates: start: 20200515
  70. XGEVA [Suspect]
     Active Substance: DENOSUMAB
     Indication: HER2 positive breast cancer
     Dosage: 120.000MG
     Route: 058
     Dates: start: 20181017, end: 20190826
  71. XGEVA [Suspect]
     Active Substance: DENOSUMAB
     Dosage: 120.000MG
     Route: 058
     Dates: start: 20170505, end: 20180329
  72. XGEVA [Suspect]
     Active Substance: DENOSUMAB
     Dosage: 120.000MG
     Route: 058
     Dates: start: 20200310, end: 20201127
  73. XGEVA [Suspect]
     Active Substance: DENOSUMAB
     Dosage: 120.000MG
     Route: 058
     Dates: start: 20210716
  74. ASPIRIN [Concomitant]
     Active Substance: ASPIRIN
     Indication: Hypertension
     Dosage: UNK
     Route: 065
     Dates: start: 20171120, end: 20190615
  75. CALCIUM CARBONATE\CHOLECALCIFEROL [Concomitant]
     Active Substance: CALCIUM CARBONATE\CHOLECALCIFEROL
     Indication: Product used for unknown indication
     Dosage: UNK
     Route: 065
     Dates: start: 20170505, end: 20190615
  76. CLINDAMYCIN [Concomitant]
     Active Substance: CLINDAMYCIN
     Indication: Product used for unknown indication
     Route: 065
  77. CORTISONE ACETATE [Concomitant]
     Active Substance: CORTISONE ACETATE
     Indication: Product used for unknown indication
     Dosage: ONGOING = NOT CHECKED
     Route: 065
     Dates: start: 20180608, end: 20180608
  78. CORTISONE ACETATE [Concomitant]
     Active Substance: CORTISONE ACETATE
     Indication: Product used for unknown indication
     Dosage: UNK
     Route: 065
     Dates: start: 20180608, end: 20180608
  79. DEXABENE [Concomitant]
     Indication: Product used for unknown indication
     Route: 065
     Dates: start: 20181107
  80. DEXAMETHASONE [Concomitant]
     Active Substance: DEXAMETHASONE
     Indication: Product used for unknown indication
     Dosage: UNK
     Route: 065
  81. ENTRESTO [Concomitant]
     Active Substance: SACUBITRIL\VALSARTAN
     Indication: Product used for unknown indication
     Route: 065
  82. DIMETHINDENE [Concomitant]
     Active Substance: DIMETHINDENE
     Indication: Product used for unknown indication
     Dosage: ONGOING = CHECKED
     Route: 065
     Dates: start: 20170414
  83. FERINJECT [Concomitant]
     Active Substance: FERRIC CARBOXYMALTOSE
     Indication: Product used for unknown indication
     Dosage: ONGOING = NOT CHECKED
     Route: 065
     Dates: start: 20220218, end: 20220218
  84. DEXAMETHASONE [Concomitant]
     Active Substance: DEXAMETHASONE
     Indication: Product used for unknown indication
     Dosage: UNK
     Route: 065
     Dates: start: 20180723, end: 20181017
  85. DEXAMETHASONE [Concomitant]
     Active Substance: DEXAMETHASONE
     Dosage: UNK
     Route: 065
     Dates: start: 20181017
  86. HYDROCHLOROTHIAZIDE [Concomitant]
     Active Substance: HYDROCHLOROTHIAZIDE
     Indication: Product used for unknown indication
     Dosage: UNK
     Route: 065
     Dates: start: 20210129
  87. KYTRIL [Concomitant]
     Active Substance: GRANISETRON HYDROCHLORIDE
     Indication: Product used for unknown indication
     Dosage: ONGOING = CHECKED
     Route: 065
     Dates: start: 20180608, end: 20181017
  88. Lannapril plus [Concomitant]
     Indication: Product used for unknown indication
     Dosage: UNK
     Route: 065
     Dates: start: 20210129, end: 20221124
  89. ORADEXON [Concomitant]
     Active Substance: DEXAMETHASONE
     Indication: Product used for unknown indication
     Route: 065
     Dates: start: 20180723, end: 20181017
  90. ORADEXON [Concomitant]
     Active Substance: DEXAMETHASONE
     Route: 065
     Dates: start: 20181017
  91. PANTOPRAZOLE [Concomitant]
     Active Substance: PANTOPRAZOLE
     Indication: Product used for unknown indication
     Dosage: UNK
     Route: 065
  92. DEXIBUPROFEN [Concomitant]
     Active Substance: DEXIBUPROFEN
     Indication: Product used for unknown indication
     Dosage: UNK
     Route: 065
  93. RAMIPRIL [Concomitant]
     Active Substance: RAMIPRIL
     Indication: Product used for unknown indication
     Dosage: UNK
     Route: 065
  94. HYDROCHLOROTHIAZIDE\RAMIPRIL [Concomitant]
     Active Substance: HYDROCHLOROTHIAZIDE\RAMIPRIL
     Indication: Product used for unknown indication
     Dosage: UNK
     Route: 065
  95. HYDROCHLOROTHIAZIDE\RAMIPRIL [Concomitant]
     Active Substance: HYDROCHLOROTHIAZIDE\RAMIPRIL
     Dosage: ONGOING = CHECKED
     Route: 065
     Dates: start: 20210129
  96. RANITIDINE HYDROCHLORIDE [Concomitant]
     Active Substance: RANITIDINE HYDROCHLORIDE
     Indication: Product used for unknown indication
     Dosage: UNK
     Route: 065
     Dates: start: 20170414, end: 20191119
  97. METHYLPREDNISOLONE [Concomitant]
     Active Substance: METHYLPREDNISOLONE
     Indication: Product used for unknown indication
     Dosage: UNK
     Route: 065
     Dates: start: 20191210
  98. VIBRAMYCIN [Concomitant]
     Active Substance: DOXYCYCLINE
     Indication: Sinusitis
     Dosage: ONGOING = NOT CHECKED
     Route: 065
     Dates: start: 20180417, end: 20180615
  99. DOXYCYCLINE HYDROCHLORIDE [Concomitant]
     Active Substance: DOXYCYCLINE HYDROCHLORIDE
     Indication: Sinusitis
     Dosage: ONGOING = NOT CHECKED
     Route: 065
     Dates: start: 20180417, end: 20180615

REACTIONS (18)
  - Dyspnoea exertional [Recovered/Resolved]
  - Polyneuropathy [Unknown]
  - Fatigue [Recovered/Resolved]
  - Dysgeusia [Recovered/Resolved]
  - Diarrhoea [Recovered/Resolved]
  - Hypertension [Recovered/Resolved]
  - Ejection fraction decreased [Recovered/Resolved]
  - Ejection fraction decreased [Recovered/Resolved]
  - Flank pain [Recovered/Resolved]
  - Renal pain [Recovered/Resolved]
  - Ejection fraction decreased [Recovering/Resolving]
  - Pain in jaw [Recovered/Resolved]
  - Sinusitis [Recovered/Resolved]
  - Dyspnoea [Recovered/Resolved]
  - Dyspnoea [Recovered/Resolved]
  - Hypertension [Recovering/Resolving]
  - Pyrexia [Not Recovered/Not Resolved]
  - Paraesthesia [Recovered/Resolved]

NARRATIVE: CASE EVENT DATE: 20171030
